FAERS Safety Report 6384421-6 (Version None)
Quarter: 2009Q3

REPORT INFORMATION
  Report Type: 
  Country: None (occurrence: None)
  Receive Date: 20090929
  Receipt Date: 20090921
  Transmission Date: 20100115
  Serious: Yes (Life-Threatening, Hospitalization)
  Sender: FDA-Public Use
  Company Number: UTC-000645

PATIENT
  Age: 56 Year
  Sex: Male

DRUGS (9)
  1. REMODULIN [Suspect]
     Indication: PULMONARY ARTERIAL HYPERTENSION
     Dosage: 21.6 UG/KG (0.015 UG/KG,1 IN 1 MIN)
     Dates: start: 20090401
  2. REVATIO [Concomitant]
  3. BETALOC (METOPROLOL TARTRATE) [Concomitant]
  4. HELICID (OMEPRAZOLE) [Concomitant]
  5. FUROSEMIDE [Concomitant]
  6. VEROAPIRON (SPIRONOLACTONE) [Concomitant]
  7. RAMIPRIL [Concomitant]
  8. MILURID [Concomitant]
  9. INZULIN (INSULIN) [Concomitant]

REACTIONS (4)
  - CARDIAC ANEURYSM [None]
  - CORONARY ARTERY OCCLUSION [None]
  - EJECTION FRACTION DECREASED [None]
  - MYOCARDIAL INFARCTION [None]
